FAERS Safety Report 8998106 (Version 6)
Quarter: 2013Q1

REPORT INFORMATION
  Report Type: Report from Study
  Country: US (occurrence: US)
  Receive Date: 20130104
  Receipt Date: 20130308
  Transmission Date: 20140127
  Serious: Yes (Death, Life-Threatening, Hospitalization)
  Sender: FDA-Public Use
  Company Number: US-MERCK-1301USA000279

PATIENT
  Age: 15 Month
  Sex: Male
  Weight: 9.6 kg

DRUGS (25)
  1. VORINOSTAT [Suspect]
     Indication: PRIMITIVE NEUROECTODERMAL TUMOUR
     Dosage: CYCLE 21 DAYS. 230 MG/M2, ON DAYS 1-4
     Route: 048
     Dates: start: 20121222, end: 20121225
  2. VORINOSTAT [Suspect]
     Dosage: CYCLE 21 DAYS. 230 MG/M2, ON DAYS 1-4
     Route: 048
     Dates: start: 20130115, end: 20130118
  3. ISOTRETINOIN [Suspect]
     Indication: PRIMITIVE NEUROECTODERMAL TUMOUR
     Dosage: CYCLE 21 DAYS. 80 MG/M2, BID ON DAYS 1-4
     Route: 048
     Dates: start: 20121222, end: 20121225
  4. ISOTRETINOIN [Suspect]
     Dosage: CYCLE 21 DAYS. 80 MG/M2, BID ON DAYS 1-4
     Route: 048
     Dates: start: 20130115, end: 20130118
  5. VINCRISTINE [Suspect]
     Indication: PRIMITIVE NEUROECTODERMAL TUMOUR
     Dosage: CYCLE 21 DAYS. 0.05 MG/KG, QD ON DAYS 4, 11 AND 18
     Route: 042
     Dates: start: 20121225, end: 20121225
  6. VINCRISTINE [Suspect]
     Dosage: CYCLE 21 DAYS. 0.05 MG/KG, QD ON DAYS 4, 11 AND 18
     Route: 042
     Dates: start: 20130118, end: 20130118
  7. CISPLATIN [Suspect]
     Indication: PRIMITIVE NEUROECTODERMAL TUMOUR
     Dosage: CYCLE 21 DAYS. 3.5 MG/KG, QD OVER 6 HRS ON DAY 4
     Route: 042
     Dates: start: 20121225, end: 20121225
  8. CISPLATIN [Suspect]
     Dosage: CYCLE 21 DAYS. 3.5 MG/KG, QD OVER 6 HRS ON DAY 4
     Route: 042
     Dates: start: 20130118, end: 20130118
  9. CYCLOPHOSPHAMIDE [Suspect]
     Indication: PRIMITIVE NEUROECTODERMAL TUMOUR
     Dosage: CYCLE 21 DAYS. 60 MG/KG, QD OVER 1 HR ON DAYS 5 AND 6
     Route: 042
     Dates: start: 20121226, end: 20121227
  10. CYCLOPHOSPHAMIDE [Suspect]
     Dosage: CYCLE 21 DAYS. 60 MG/KG, QD OVER 1 HR ON DAYS 5 AND 6
     Route: 042
     Dates: start: 20130119, end: 20130120
  11. ETOPOSIDE [Suspect]
     Indication: PRIMITIVE NEUROECTODERMAL TUMOUR
     Dosage: CYCLE 21 DAYS. 2.5 MG/KG, QD OVER 1 HR ON DAYS 4, 5 AND 6
     Route: 042
     Dates: start: 20121225, end: 20121227
  12. ETOPOSIDE [Suspect]
     Dosage: CYCLE 21 DAYS. 2.5 MG/KG, QD OVER 1 HR ON DAYS 4, 5 AND 6
     Route: 042
     Dates: start: 20130118, end: 20130120
  13. CEFTAZIDIME [Concomitant]
  14. DEXAMETHASONE [Concomitant]
  15. DOCUSATE SODIUM [Concomitant]
  16. FILGRASTIM [Concomitant]
  17. GABAPENTIN [Concomitant]
  18. RANITIDINE [Concomitant]
  19. ALBUTEROL [Concomitant]
  20. BACLOFEN [Concomitant]
  21. BACTRIM [Concomitant]
  22. POTASSIUM PHOSPHATE, DIBASIC [Concomitant]
  23. METHADONE HYDROCHLORIDE [Concomitant]
  24. METRONIDAZOLE [Concomitant]
  25. PROTONIX [Concomitant]

REACTIONS (7)
  - Respiratory failure [Not Recovered/Not Resolved]
  - Hypokalaemia [Not Recovered/Not Resolved]
  - Hypophosphataemia [Not Recovered/Not Resolved]
  - Respiratory distress [Recovering/Resolving]
  - Hyponatraemia [Recovered/Resolved]
  - Respiratory distress [Not Recovered/Not Resolved]
  - Primitive neuroectodermal tumour [Fatal]
